FAERS Safety Report 4673228-3 (Version None)
Quarter: 2005Q2

REPORT INFORMATION
  Report Type: 
  Country: None (occurrence: None)
  Receive Date: 20050523
  Receipt Date: 20050523
  Transmission Date: 20051028
  Serious: Yes (Hospitalization)
  Sender: FDA-Public Use
  Company Number: None

PATIENT
  Age: 40 Year
  Sex: Male
  Weight: 122.4712 kg

DRUGS (1)
  1. WELLBUTRIN [Suspect]
     Indication: SMOKING CESSATION THERAPY
     Dosage: 150 MG ONCE A DAY
     Dates: start: 20050512, end: 20050515

REACTIONS (2)
  - DYSPNOEA [None]
  - HEART RATE INCREASED [None]
